FAERS Safety Report 20955847 (Version 1)
Quarter: 2022Q2

REPORT INFORMATION
  Report Type: Spontaneous
  Country: US (occurrence: None)
  Receive Date: 20220614
  Receipt Date: 20220614
  Transmission Date: 20220721
  Serious: Yes (Hospitalization)
  Sender: FDA-Public Use
  Company Number: None

PATIENT
  Age: 9 Year
  Sex: Male
  Weight: 30.8 kg

DRUGS (12)
  1. CYCLOPHOSPHAMIDE [Suspect]
     Active Substance: CYCLOPHOSPHAMIDE
     Dates: end: 20220524
  2. CYTARABINE [Suspect]
     Active Substance: CYTARABINE
     Dates: end: 20220603
  3. METHOTREXATE [Suspect]
     Active Substance: METHOTREXATE
     Dates: end: 20220531
  4. THIOGUANINE ANHYDROUS [Suspect]
     Active Substance: THIOGUANINE ANHYDROUS
     Dates: end: 20220603
  5. ATIVAN [Concomitant]
     Active Substance: LORAZEPAM
  6. CATHFLO ACTIVASE [Concomitant]
     Active Substance: ALTEPLASE
  7. FLAGYL [Concomitant]
     Active Substance: METRONIDAZOLE\METRONIDAZOLE HYDROCHLORIDE
  8. MAXIPIME [Concomitant]
     Active Substance: CEFEPIME HYDROCHLORIDE
  9. MORPHINE [Concomitant]
     Active Substance: MORPHINE
  10. NEURONTIN [Concomitant]
     Active Substance: GABAPENTIN
  11. ZOFRAN [Concomitant]
     Active Substance: ONDANSETRON HYDROCHLORIDE
  12. ROCEPHIN [Concomitant]
     Active Substance: CEFTRIAXONE SODIUM

REACTIONS (32)
  - Pyrexia [None]
  - Nausea [None]
  - Vomiting [None]
  - Exposure to SARS-CoV-2 [None]
  - Back pain [None]
  - Diarrhoea [None]
  - Haematemesis [None]
  - Abdominal pain [None]
  - Abdominal pain lower [None]
  - Food intolerance [None]
  - Haemoglobin decreased [None]
  - Platelet count decreased [None]
  - Dehydration [None]
  - Viral infection [None]
  - Appendicitis [None]
  - Contusion [None]
  - Neutropenia [None]
  - Therapy interrupted [None]
  - Toxicity to various agents [None]
  - Abdominal distension [None]
  - Urinary retention [None]
  - Respiratory failure [None]
  - Pancreatitis [None]
  - Sepsis [None]
  - Colitis [None]
  - Polyarteritis nodosa [None]
  - Inflammation [None]
  - Norovirus test positive [None]
  - Clostridium test positive [None]
  - Colitis [None]
  - Acute respiratory failure [None]
  - Localised oedema [None]

NARRATIVE: CASE EVENT DATE: 20220603
